FAERS Safety Report 15991388 (Version 1)
Quarter: 2019Q1

REPORT INFORMATION
  Report Type: Report from Study
  Country: IT (occurrence: IT)
  Receive Date: 20190221
  Receipt Date: 20190221
  Transmission Date: 20190418
  Serious: Yes (Hospitalization)
  Sender: FDA-Public Use
  Company Number: IT-PFIZER INC-2019075232

PATIENT
  Age: 42 Year
  Sex: Male

DRUGS (3)
  1. QUETIAPINE. [Suspect]
     Active Substance: QUETIAPINE
     Dosage: 250 MG, UNK
     Route: 048
     Dates: start: 20190116, end: 20190116
  2. XANAX [Suspect]
     Active Substance: ALPRAZOLAM
     Indication: ANXIETY
     Dosage: 30 DF, UNK
     Route: 048
     Dates: start: 20190116, end: 20190116
  3. DALMADORM [Suspect]
     Active Substance: FLURAZEPAM HYDROCHLORIDE
     Indication: ANXIETY
     Dosage: 15 DF, UNK
     Route: 048
     Dates: start: 20190116, end: 20190116

REACTIONS (3)
  - Drug abuse [Recovered/Resolved]
  - Intentional self-injury [Recovered/Resolved]
  - Sluggishness [Recovered/Resolved]

NARRATIVE: CASE EVENT DATE: 20190116
